FAERS Safety Report 17067949 (Version 2)
Quarter: 2019Q4

REPORT INFORMATION
  Report Type: Spontaneous
  Country: ES (occurrence: ES)
  Receive Date: 20191122
  Receipt Date: 20191126
  Transmission Date: 20200122
  Serious: Yes (Other)
  Sender: FDA-Public Use
  Company Number: ES-JNJFOC-20191125157

PATIENT
  Age: 77 Year
  Sex: Female

DRUGS (2)
  1. DUROGESIC MATRIX [Suspect]
     Active Substance: FENTANYL
     Indication: PAIN
     Route: 062
     Dates: end: 201903
  2. DUROGESIC MATRIX [Suspect]
     Active Substance: FENTANYL
     Route: 062
     Dates: end: 201903

REACTIONS (3)
  - Muscle twitching [Not Recovered/Not Resolved]
  - Monoplegia [Not Recovered/Not Resolved]
  - Therapeutic product effect incomplete [Not Recovered/Not Resolved]

NARRATIVE: CASE EVENT DATE: 2019
